FAERS Safety Report 6856643-9 (Version None)
Quarter: 2010Q3

REPORT INFORMATION
  Report Type: 
  Country: None (occurrence: None)
  Receive Date: 20100719
  Receipt Date: 20100715
  Transmission Date: 20110219
  Serious: Yes (Hospitalization)
  Sender: FDA-Public Use
  Company Number: IT-MERCK-1005ITA00028

PATIENT
  Age: 84 Year
  Sex: Female

DRUGS (4)
  1. PRIMAXIN [Suspect]
     Indication: HYPERPYREXIA
     Route: 041
     Dates: start: 20100515, end: 20100518
  2. PREDNISONE [Concomitant]
     Route: 065
  3. OMEPRAZOLE [Concomitant]
     Route: 048
     Dates: start: 20100515
  4. ENOXAPARIN SODIUM [Concomitant]
     Route: 058
     Dates: start: 20100515

REACTIONS (1)
  - ERYTHEMA [None]
